FAERS Safety Report 10012734 (Version 1)
Quarter: 2014Q1

REPORT INFORMATION
  Report Type: Report from Study
  Country: BR (occurrence: BR)
  Receive Date: 20140314
  Receipt Date: 20140314
  Transmission Date: 20141002
  Serious: Yes (Death, Hospitalization, Other)
  Sender: FDA-Public Use
  Company Number: PHHY2014BR031058

PATIENT
  Age: 81 Year
  Sex: Male
  Weight: 65 kg

DRUGS (1)
  1. EXELON [Suspect]
     Indication: DEMENTIA ALZHEIMER^S TYPE
     Dosage: (1 TABLE SPOON FUL)
     Route: 048
     Dates: start: 2004

REACTIONS (8)
  - Pancreatic carcinoma [Fatal]
  - Neoplasm malignant [Unknown]
  - Yellow skin [Unknown]
  - Hallucination [Unknown]
  - Hepatitis [Unknown]
  - Depression [Unknown]
  - Speech disorder [Unknown]
  - Muscular weakness [Unknown]
